FAERS Safety Report 5990832-0 (Version None)
Quarter: 2008Q4

REPORT INFORMATION
  Report Type: 
  Country: None (occurrence: None)
  Receive Date: 20081211
  Receipt Date: 20081203
  Transmission Date: 20090506
  Serious: Yes (Hospitalization, Other)
  Sender: FDA-Public Use
  Company Number: FR-ASTRAZENECA-2008CG01676

PATIENT
  Age: 777 Month
  Sex: Male

DRUGS (1)
  1. NEXIUM [Suspect]
     Route: 055
     Dates: start: 20080401, end: 20080101

REACTIONS (3)
  - BRONCHIAL INJURY [None]
  - BRONCHOSTENOSIS [None]
  - INCORRECT ROUTE OF DRUG ADMINISTRATION [None]
